FAERS Safety Report 11087555 (Version 1)
Quarter: 2015Q2

REPORT INFORMATION
  Report Type: Spontaneous
  Country: DE (occurrence: None)
  Receive Date: 20150430
  Receipt Date: 20150430
  Transmission Date: 20150821
  Serious: Yes (Hospitalization)
  Sender: FDA-Public Use
  Company Number: DE-DEXPHARM-20150287

PATIENT
  Age: 78 Year
  Sex: Male

DRUGS (2)
  1. SOLARAZE [Suspect]
     Active Substance: DICLOFENAC SODIUM
     Route: 061
  2. ALDARA [Suspect]
     Active Substance: IMIQUIMOD
     Route: 061

REACTIONS (4)
  - Staphylococcus test positive [None]
  - Skin graft [None]
  - Impaired healing [None]
  - Skin erosion [None]
